FAERS Safety Report 4762323-6 (Version None)
Quarter: 2005Q3

REPORT INFORMATION
  Report Type: 
  Country: None (occurrence: None)
  Receive Date: 20050907
  Receipt Date: 20050831
  Transmission Date: 20060218
  Serious: Yes (Other)
  Sender: FDA-Public Use
  Company Number: US-JNJFOC-20050704627

PATIENT
  Age: 60 Year
  Sex: Male

DRUGS (7)
  1. REMICADE [Suspect]
  2. SULFA [Concomitant]
  3. SULFA [Concomitant]
  4. SULFA [Concomitant]
  5. SULFA [Concomitant]
  6. AZATHIOPRIM [Concomitant]
  7. LEVAQUIN [Concomitant]

REACTIONS (2)
  - ANTINUCLEAR ANTIBODY POSITIVE [None]
  - DEAFNESS NEUROSENSORY [None]
